FAERS Safety Report 8357606-7 (Version None)
Quarter: 2012Q2

REPORT INFORMATION
  Report Type: 
  Country: None (occurrence: None)
  Receive Date: 20120510
  Receipt Date: 20120507
  Transmission Date: 20120825
  Serious: Yes (Death, Other)
  Sender: FDA-Public Use
  Company Number: 2012SP023744

PATIENT
  Age: 48 Year
  Sex: Male

DRUGS (2)
  1. REMERON [Suspect]
     Indication: PRODUCT USED FOR UNKNOWN INDICATION
  2. EFFEXOR [Concomitant]

REACTIONS (6)
  - DIZZINESS [None]
  - TREMOR [None]
  - PARAESTHESIA [None]
  - COMPLETED SUICIDE [None]
  - AGITATION [None]
  - DRUG WITHDRAWAL SYNDROME [None]
